FAERS Safety Report 4421171-7 (Version None)
Quarter: 2004Q3

REPORT INFORMATION
  Report Type: 
  Country: None (occurrence: None)
  Receive Date: 20040804
  Receipt Date: 20040721
  Transmission Date: 20050211
  Serious: Yes (Other)
  Sender: FDA-Public Use
  Company Number: TR-JNJFOC-20040605708

PATIENT
  Age: 18 Year
  Sex: Female
  Weight: 42 kg

DRUGS (6)
  1. REMICADE [Suspect]
     Indication: JUVENILE ARTHRITIS
     Dosage: SEE IMGAE
     Route: 042
     Dates: start: 20040430, end: 20040430
  2. REMICADE [Suspect]
     Indication: JUVENILE ARTHRITIS
     Dosage: SEE IMGAE
     Route: 042
     Dates: start: 20040622, end: 20040622
  3. DELTACORTRIL [Concomitant]
  4. FOLBIOL (FOLIC ACID) [Concomitant]
  5. ARAVA [Concomitant]
  6. METHOTREXATE [Concomitant]

REACTIONS (10)
  - ABDOMINAL PAIN [None]
  - DRUG HYPERSENSITIVITY [None]
  - DYSPNOEA [None]
  - FACE OEDEMA [None]
  - FLUSHING [None]
  - GROIN PAIN [None]
  - HYPERTHERMIA [None]
  - INFUSION RELATED REACTION [None]
  - TACHYCARDIA [None]
  - VOMITING PROJECTILE [None]
